FAERS Safety Report 23119070 (Version 1)
Quarter: 2023Q4

REPORT INFORMATION
  Report Type: Spontaneous
  Country: US (occurrence: US)
  Receive Date: 20231028
  Receipt Date: 20231028
  Transmission Date: 20240109
  Serious: Yes (Other)
  Sender: FDA-Public Use
  Company Number: US-drreddys-SPO/USA/23/0180490

PATIENT
  Age: 13 Year

DRUGS (1)
  1. ACCUTANE [Suspect]
     Active Substance: ISOTRETINOIN
     Indication: Product used for unknown indication
     Dosage: RMA ISSUE DATE: 18 AUGUST 2023 02:12:30 PM AND 15 SEPTEMBER 2023 01:41:28 PM

REACTIONS (1)
  - Depression [Unknown]
